FAERS Safety Report 22291557 (Version 1)
Quarter: 2023Q2

REPORT INFORMATION
  Report Type: Spontaneous
  Country: CN (occurrence: CN)
  Receive Date: 20230506
  Receipt Date: 20230506
  Transmission Date: 20230722
  Serious: Yes (Hospitalization)
  Sender: FDA-Public Use
  Company Number: CN-FreseniusKabi-FK202305918

PATIENT
  Age: 64 Year
  Sex: Male
  Weight: 51 kg

DRUGS (1)
  1. SMOFLIPID [Suspect]
     Active Substance: FISH OIL\MEDIUM-CHAIN TRIGLYCERIDES\OLIVE OIL\SOYBEAN OIL
     Indication: Nutritional supplementation
     Route: 041
     Dates: start: 20230421, end: 20230421

REACTIONS (4)
  - Tachypnoea [Recovering/Resolving]
  - Chills [Recovering/Resolving]
  - Dyspnoea [Recovering/Resolving]
  - Blood pressure increased [Recovering/Resolving]

NARRATIVE: CASE EVENT DATE: 20230421
